FAERS Safety Report 21883688 (Version 1)
Quarter: 2023Q1

REPORT INFORMATION
  Report Type: Spontaneous
  Country: US (occurrence: None)
  Receive Date: 20230118
  Receipt Date: 20230118
  Transmission Date: 20230417
  Serious: No
  Sender: FDA-Public Use
  Company Number: None

PATIENT
  Age: 77 Year
  Sex: Male
  Weight: 80 kg

DRUGS (1)
  1. RAMIPRIL [Suspect]
     Active Substance: RAMIPRIL
     Indication: Hypertension
     Dosage: 1 TAB EVERY DAY PO
     Route: 048
     Dates: start: 20220330, end: 20221031

REACTIONS (1)
  - Angioedema [None]

NARRATIVE: CASE EVENT DATE: 20221031
